FAERS Safety Report 20583565 (Version 9)
Quarter: 2022Q3

REPORT INFORMATION
  Report Type: Report from Study
  Country: SA (occurrence: SA)
  Receive Date: 20220311
  Receipt Date: 20220815
  Transmission Date: 20221027
  Serious: Yes (Hospitalization, Disabling, Other)
  Sender: FDA-Public Use
  Company Number: SA-AMGEN-SAUCT2022000011

PATIENT
  Age: 64 Year
  Sex: Male
  Weight: 64.9 kg

DRUGS (12)
  1. SOTORASIB [Suspect]
     Active Substance: SOTORASIB
     Indication: Non-small cell lung cancer stage IV
     Dosage: UNK MILLIGRAM
     Route: 048
     Dates: start: 20211201, end: 20211229
  2. SOTORASIB [Suspect]
     Active Substance: SOTORASIB
     Indication: K-ras gene mutation
     Dosage: UNK
     Route: 048
     Dates: start: 20220102
  3. BISOPROLOL [Concomitant]
     Active Substance: BISOPROLOL
     Dosage: 5 MILLIGRAM
     Route: 048
     Dates: start: 2008, end: 20220424
  4. AMLODIPINE BESYLATE [Concomitant]
     Active Substance: AMLODIPINE BESYLATE
     Dosage: 10 MILLIGRAM
     Route: 048
     Dates: start: 2008, end: 20220424
  5. METFORMIN [Concomitant]
     Active Substance: METFORMIN HYDROCHLORIDE
     Dosage: 1000 MILLIGRAM
     Route: 048
     Dates: start: 200812, end: 20220424
  6. EZETIMIBE [Concomitant]
     Active Substance: EZETIMIBE
     Dosage: 10 MILLIGRAM
     Route: 048
     Dates: start: 2008, end: 20220424
  7. CHOLECALCIFEROL [Concomitant]
     Active Substance: CHOLECALCIFEROL
     Dosage: 50000 UNK
     Route: 048
     Dates: start: 20210823, end: 20220424
  8. WARFARIN [Concomitant]
     Active Substance: WARFARIN
     Indication: Aortic valve incompetence
     Dosage: 5 MILLIGRAM
     Route: 048
     Dates: start: 20200410, end: 20220125
  9. ESOMEPRAZOLE [Concomitant]
     Active Substance: ESOMEPRAZOLE
     Dosage: 40 MILLIGRAM
     Route: 048
     Dates: start: 20200322, end: 20220424
  10. CALCIUM CARBONATE [Concomitant]
     Active Substance: CALCIUM CARBONATE
     Dosage: 600 MILLIGRAM
     Route: 048
     Dates: start: 20210823, end: 20220424
  11. FENTANYL [Concomitant]
     Active Substance: FENTANYL
     Dosage: 50 MILLIEQUIVALENT
     Route: 062
     Dates: start: 20211220, end: 20220424
  12. VITAMIN C [Concomitant]
     Active Substance: ASCORBIC ACID
     Dosage: 1000 MILLIGRAM
     Route: 048
     Dates: start: 20210126, end: 20220204

REACTIONS (1)
  - Aortic valve incompetence [Not Recovered/Not Resolved]

NARRATIVE: CASE EVENT DATE: 20211230
